FAERS Safety Report 14245227 (Version 4)
Quarter: 2018Q2

REPORT INFORMATION
  Report Type: Spontaneous
  Country: JP (occurrence: JP)
  Receive Date: 20171202
  Receipt Date: 20180413
  Transmission Date: 20180711
  Serious: Yes (Disabling, Other)
  Sender: FDA-Public Use
  Company Number: JP-AMGEN-JPNSP2017179959

PATIENT
  Age: 21 Year
  Sex: Male
  Weight: 50 kg

DRUGS (11)
  1. INLYTA [Suspect]
     Active Substance: AXITINIB
     Dosage: 5 MG, BID
     Route: 065
     Dates: start: 20150504, end: 20150914
  2. SUNITINIB [Suspect]
     Active Substance: SUNITINIB
     Indication: PRODUCT USED FOR UNKNOWN INDICATION
     Dosage: UNK
     Route: 065
  3. THYRADIN S [Concomitant]
     Active Substance: LEVOTHYROXINE SODIUM
     Dosage: 100 MUG, QD
     Route: 065
  4. DERMOVATE [Concomitant]
     Active Substance: CLOBETASOL
     Dosage: UNK
     Route: 065
  5. INLYTA [Suspect]
     Active Substance: AXITINIB
     Indication: PRODUCT USED FOR UNKNOWN INDICATION
     Dosage: 5 MG, BID
     Route: 065
  6. AMLODIN [Concomitant]
     Active Substance: AMLODIPINE BESYLATE
     Dosage: 5 MG, QD
     Route: 065
  7. DENOTAS [Concomitant]
     Active Substance: CALCIUM CARBONATE\CHOLECALCIFEROL\MAGNESIUM CARBONATE
     Dosage: 1 DF, QD
     Route: 065
  8. RANMARK [Suspect]
     Active Substance: DENOSUMAB
     Indication: METASTASES TO BONE
     Dosage: 120 MG, UNK
     Route: 058
     Dates: start: 20141104, end: 20150316
  9. RANMARK [Suspect]
     Active Substance: DENOSUMAB
     Dosage: 120 MG, UNK
     Route: 058
     Dates: start: 20150622
  10. INLYTA [Suspect]
     Active Substance: AXITINIB
     Dosage: UNK
     Route: 065
     Dates: start: 20150917
  11. NIVOLUMAB [Suspect]
     Active Substance: NIVOLUMAB
     Indication: PRODUCT USED FOR UNKNOWN INDICATION
     Dosage: UNK
     Route: 065

REACTIONS (2)
  - Osteomyelitis [Unknown]
  - Metastases to liver [Unknown]

NARRATIVE: CASE EVENT DATE: 20150223
